FAERS Safety Report 7675615-8 (Version None)
Quarter: 2011Q3

REPORT INFORMATION
  Report Type: 
  Country: None (occurrence: None)
  Receive Date: 20110810
  Receipt Date: 20110804
  Transmission Date: 20111222
  Serious: Yes (Death)
  Sender: FDA-Public Use
  Company Number: US-CELGENEUS-163-21880-11080617

PATIENT
  Sex: Male
  Weight: 99.88 kg

DRUGS (13)
  1. REVLIMID [Suspect]
     Dosage: 25 MILLIGRAM
     Route: 048
     Dates: start: 20110609, end: 20110101
  2. MULTI-VITAMINS [Concomitant]
     Route: 048
  3. NORVASC [Concomitant]
     Dosage: 10 MILLIGRAM
     Route: 048
  4. UROCIT-K [Concomitant]
     Dosage: 10
     Route: 048
  5. ASPIRIN [Concomitant]
     Dosage: 325 MILLIGRAM
     Route: 048
  6. LIPRAM [Concomitant]
     Dosage: 4500
     Route: 048
  7. AMLODIPINE [Concomitant]
     Dosage: 10 MILLIGRAM
     Route: 048
  8. ATENOLOL [Concomitant]
     Dosage: 25 MILLIGRAM
     Route: 048
  9. DIOVAN [Concomitant]
     Dosage: 40 MILLIGRAM
     Route: 048
  10. OSCAL W/ VITAMIN D3 [Concomitant]
     Dosage: 500/200
     Route: 048
  11. PRILOSEC [Concomitant]
     Dosage: 20 MILLIGRAM
     Route: 048
  12. CRESTOR [Concomitant]
     Dosage: 20 MILLIGRAM
     Route: 048
  13. METFORMIN HCL [Concomitant]
     Dosage: 500 MILLIGRAM
     Route: 048

REACTIONS (1)
  - DEATH [None]
